FAERS Safety Report 7639532-1 (Version None)
Quarter: 2011Q3

REPORT INFORMATION
  Report Type: 
  Country: None (occurrence: None)
  Receive Date: 20110727
  Receipt Date: 20110701
  Transmission Date: 20111222
  Serious: Yes (Hospitalization)
  Sender: FDA-Public Use
  Company Number: JP-GLAXOSMITHKLINE-B0731007A

PATIENT
  Age: 34 Year
  Sex: Female

DRUGS (1)
  1. SERETIDE (50MCG/250MCG) [Suspect]
     Indication: ASTHMA
     Dosage: 12500MCG PER DAY
     Route: 055

REACTIONS (3)
  - CONVULSION [None]
  - OVERDOSE [None]
  - AGITATION [None]
